FAERS Safety Report 8419496-3 (Version None)
Quarter: 2012Q2

REPORT INFORMATION
  Report Type: 
  Country: None (occurrence: None)
  Receive Date: 20120604
  Receipt Date: 20120604
  Transmission Date: 20120825
  Serious: Yes (Other)
  Sender: FDA-Public Use
  Company Number: None

PATIENT
  Age: 32 Year
  Sex: Female
  Weight: 111.1313 kg

DRUGS (2)
  1. LEVONORGESTREL AND ETHINYL ESTRADIOL [Suspect]
  2. LEVONORGESTREL AND ETHINYL ESTRADIOL [Suspect]
     Indication: MUSCLE SPASMS
     Dosage: 1 PILL PER DAY PO
     Route: 048
     Dates: start: 20120509, end: 20120602

REACTIONS (9)
  - VISION BLURRED [None]
  - EYE PAIN [None]
  - VULVOVAGINAL DRYNESS [None]
  - PRODUCT LABEL ISSUE [None]
  - OEDEMA PERIPHERAL [None]
  - HYPERHIDROSIS [None]
  - FLATULENCE [None]
  - DIPLOPIA [None]
  - DRY EYE [None]
